FAERS Safety Report 10034449 (Version 1)
Quarter: 2014Q1

REPORT INFORMATION
  Report Type: Spontaneous
  Country: US (occurrence: None)
  Receive Date: 20140324
  Receipt Date: 20140324
  Transmission Date: 20141002
  Serious: Yes (Hospitalization)
  Sender: FDA-Public Use
  Company Number: None

PATIENT
  Age: 25 Year
  Sex: Female
  Weight: 45.36 kg

DRUGS (1)
  1. HYDROCORTISONE [Suspect]
     Indication: ADDISON^S DISEASE
     Dosage: 3 PILLS/DAY THREE TIMES DAILY TAKEN BY MOUTH
     Route: 048
     Dates: start: 20130202, end: 20140321

REACTIONS (3)
  - Fatigue [None]
  - Food allergy [None]
  - Product substitution issue [None]
